FAERS Safety Report 9380124 (Version 1)
Quarter: 2013Q2

REPORT INFORMATION
  Report Type: Spontaneous
  Country: IT (occurrence: None)
  Receive Date: 20130628
  Receipt Date: 20130628
  Transmission Date: 20140414
  Serious: Yes (Hospitalization)
  Sender: FDA-Public Use
  Company Number: INT_00262_2013

PATIENT
  Age: 89 Year
  Sex: Female

DRUGS (2)
  1. CEFTRIAXON (CEFTRIAXON) (NOT SPECIFIED) [Suspect]
     Indication: BRONCHITIS
     Route: 030
     Dates: start: 20121009, end: 20121015
  2. COUMADIN /00014802/ [Suspect]
     Indication: ATRIAL FIBRILLATION
     Dosage: 5 MG [DAILY, AS NEEDED]
     Route: 048
     Dates: start: 2011

REACTIONS (5)
  - Nausea [None]
  - Dizziness [None]
  - Inflammation [None]
  - Urinary tract infection fungal [None]
  - Overdose [None]
